FAERS Safety Report 6483575-0 (Version None)
Quarter: 2009Q4

REPORT INFORMATION
  Report Type: 
  Country: None (occurrence: None)
  Receive Date: 20091123
  Receipt Date: 20090727
  Transmission Date: 20100525
  Serious: No
  Sender: FDA-Public Use
  Company Number: 8049572

PATIENT
  Age: 24 Year
  Sex: Female
  Weight: 40.8 kg

DRUGS (2)
  1. CIMZIA [Suspect]
     Dosage: 400 MG /M SC
     Route: 058
     Dates: start: 20090422
  2. DILAUDID [Concomitant]

REACTIONS (3)
  - ASTHENIA [None]
  - OEDEMA PERIPHERAL [None]
  - PAIN [None]
